FAERS Safety Report 7759356-4 (Version None)
Quarter: 2011Q3

REPORT INFORMATION
  Report Type: 
  Country: None (occurrence: None)
  Receive Date: 20110919
  Receipt Date: 20110912
  Transmission Date: 20111222
  Serious: Yes (Other)
  Sender: FDA-Public Use
  Company Number: US-JNJFOC-20110902494

PATIENT
  Sex: Female
  Weight: 83.46 kg

DRUGS (17)
  1. DURAGESIC-100 [Suspect]
     Indication: ARTHRITIS
     Route: 062
     Dates: start: 20050101
  2. DURAGESIC-100 [Suspect]
     Route: 062
     Dates: start: 20110101
  3. DURAGESIC-100 [Suspect]
     Route: 062
  4. DURAGESIC-100 [Suspect]
     Route: 062
     Dates: start: 20110101
  5. DURAGESIC-100 [Suspect]
     Route: 062
  6. DURAGESIC-100 [Suspect]
     Route: 062
     Dates: start: 20110101
  7. DURAGESIC-100 [Suspect]
     Indication: PAIN
     Route: 062
     Dates: start: 20050101
  8. DURAGESIC-100 [Suspect]
     Route: 062
     Dates: start: 20110101
  9. DURAGESIC-100 [Suspect]
     Route: 062
     Dates: start: 20110101
  10. DURAGESIC-100 [Suspect]
     Route: 062
     Dates: start: 20110101
  11. DURAGESIC-100 [Suspect]
     Route: 062
     Dates: start: 20110101
  12. DURAGESIC-100 [Suspect]
     Route: 062
  13. DURAGESIC-100 [Suspect]
     Indication: FIBROMYALGIA
     Route: 062
     Dates: start: 20050101
  14. DURAGESIC-100 [Suspect]
     Route: 062
  15. DURAGESIC-100 [Suspect]
     Route: 062
  16. DURAGESIC-100 [Suspect]
     Route: 062
  17. DURAGESIC-100 [Suspect]
     Route: 062
     Dates: start: 20110101

REACTIONS (7)
  - PAIN [None]
  - HYPOAESTHESIA [None]
  - BACK PAIN [None]
  - INTERVERTEBRAL DISC PROTRUSION [None]
  - PRODUCT ADHESION ISSUE [None]
  - GAIT DISTURBANCE [None]
  - INTERVERTEBRAL DISC DEGENERATION [None]
